FAERS Safety Report 5865505-5 (Version None)
Quarter: 2008Q3

REPORT INFORMATION
  Report Type: 
  Country: None (occurrence: None)
  Receive Date: 20080829
  Receipt Date: 20080211
  Transmission Date: 20090109
  Serious: Yes (Other)
  Sender: FDA-Public Use
  Company Number: US-BAYER-200830659NA

PATIENT
  Sex: Male

DRUGS (2)
  1. AVELOX [Suspect]
     Indication: EAR PAIN
     Route: 048
     Dates: start: 20080201
  2. CIPRO HC [Suspect]
     Indication: EAR PAIN

REACTIONS (1)
  - HYPOACUSIS [None]
